FAERS Safety Report 20773639 (Version 1)
Quarter: 2022Q2

REPORT INFORMATION
  Report Type: Report from Study
  Country: AU (occurrence: AU)
  Receive Date: 20220502
  Receipt Date: 20220502
  Transmission Date: 20220721
  Serious: Yes (Other)
  Sender: FDA-Public Use
  Company Number: AU-NOVARTISPH-NVSC2022AU099576

PATIENT
  Sex: Male

DRUGS (1)
  1. TRAMETINIB [Suspect]
     Active Substance: TRAMETINIB
     Indication: Erdheim-Chester disease
     Dosage: UNK
     Route: 065

REACTIONS (2)
  - Retinal toxicity [Recovered/Resolved]
  - Skin toxicity [Recovered/Resolved]
